FAERS Safety Report 6756815-8 (Version None)
Quarter: 2010Q2

REPORT INFORMATION
  Report Type: 
  Country: None (occurrence: None)
  Receive Date: 20100524
  Receipt Date: 20100201
  Transmission Date: 20101027
  Serious: Yes (Other)
  Sender: FDA-Public Use
  Company Number: 006037

PATIENT
  Sex: Male

DRUGS (1)
  1. CIMZIA [Suspect]
     Indication: CROHN'S DISEASE
     Dosage: (400 MG X/MONTH SUBCUTANEOUS0
     Route: 058
     Dates: start: 20090427

REACTIONS (2)
  - CROHN'S DISEASE [None]
  - RASH [None]
